FAERS Safety Report 5805589-3 (Version None)
Quarter: 2008Q3

REPORT INFORMATION
  Report Type: 
  Country: None (occurrence: None)
  Receive Date: 20080708
  Receipt Date: 20080708
  Transmission Date: 20090109
  Serious: No
  Sender: FDA-Public Use
  Company Number: None

PATIENT
  Sex: Female
  Weight: 80.2867 kg

DRUGS (1)
  1. CIPRO [Suspect]
     Indication: SALMONELLOSIS
     Dosage: 500 MG TWICE DAILY PO
     Route: 048
     Dates: start: 20080613, end: 20080618

REACTIONS (5)
  - MUSCULOSKELETAL PAIN [None]
  - NECK PAIN [None]
  - PHARYNGEAL OEDEMA [None]
  - TENDON PAIN [None]
  - TENDONITIS [None]
